FAERS Safety Report 7271806-9 (Version None)
Quarter: 2011Q1

REPORT INFORMATION
  Report Type: 
  Country: None (occurrence: None)
  Receive Date: 20110131
  Receipt Date: 20110131
  Transmission Date: 20110831
  Serious: Yes (Other)
  Sender: FDA-Public Use
  Company Number: None

PATIENT
  Age: 50 Year
  Sex: Female
  Weight: 74.8435 kg

DRUGS (1)
  1. VALACYCLOVIR HYDROCHLORIDE [Suspect]
     Indication: ANTIVIRAL PROPHYLAXIS
     Dosage: 2 TAB QD PO
     Route: 048

REACTIONS (3)
  - CONDITION AGGRAVATED [None]
  - HERPES VIRUS INFECTION [None]
  - PRODUCT SUBSTITUTION ISSUE [None]
